FAERS Safety Report 13704527 (Version 2)
Quarter: 2018Q2

REPORT INFORMATION
  Report Type: Report from Study
  Country: US (occurrence: US)
  Receive Date: 20170630
  Receipt Date: 20180625
  Transmission Date: 20180711
  Serious: Yes (Other)
  Sender: FDA-Public Use
  Company Number: US-ASTRAZENECA-2017SE65372

PATIENT
  Age: 51 Year
  Sex: Female

DRUGS (18)
  1. TAMOXIFEN [Suspect]
     Active Substance: TAMOXIFEN
     Route: 048
     Dates: start: 201404
  2. LETROZOLE. [Concomitant]
     Active Substance: LETROZOLE
     Dates: start: 201511
  3. EVEROLIMUS. [Concomitant]
     Active Substance: EVEROLIMUS
     Dates: start: 201612
  4. TAMOXIFEN [Suspect]
     Active Substance: TAMOXIFEN
     Dosage: UNKNOWN
     Route: 048
  5. IBRANCE [Suspect]
     Active Substance: PALBOCICLIB
     Indication: BREAST CANCER
     Route: 048
  6. TAXOL [Concomitant]
     Active Substance: PACLITAXEL
     Dates: start: 201409
  7. FASLODEX [Suspect]
     Active Substance: FULVESTRANT
     Indication: METASTASES TO BONE
     Dosage: UNKNOWN
     Route: 030
  8. ANASTROZOLE. [Suspect]
     Active Substance: ANASTROZOLE
     Route: 048
  9. CYTOXAN [Concomitant]
     Active Substance: CYCLOPHOSPHAMIDE
  10. EXEMESTANE. [Concomitant]
     Active Substance: EXEMESTANE
  11. FASLODEX [Suspect]
     Active Substance: FULVESTRANT
     Indication: BREAST CANCER
     Dosage: UNKNOWN
     Route: 030
  12. LYNPARZA [Suspect]
     Active Substance: OLAPARIB
     Dosage: UNKNOWN
     Route: 048
  13. CARBOPLATIN. [Concomitant]
     Active Substance: CARBOPLATIN
     Dates: start: 201409
  14. FULVESTRANT. [Suspect]
     Active Substance: FULVESTRANT
     Indication: METASTASES TO BONE
     Dosage: UNKNOWN
     Route: 030
  15. ADRIAMYCIN [Concomitant]
     Active Substance: DOXORUBICIN HYDROCHLORIDE
  16. LYNPARZA [Suspect]
     Active Substance: OLAPARIB
     Dosage: UNKNOWN
     Route: 048
  17. DENOSUMAB [Concomitant]
     Active Substance: DENOSUMAB
  18. CAPECITABINE. [Concomitant]
     Active Substance: CAPECITABINE
     Dates: start: 201605

REACTIONS (2)
  - Malignant neoplasm progression [Unknown]
  - Drug ineffective [Unknown]
